FAERS Safety Report 22658334 (Version 1)
Quarter: 2023Q2

REPORT INFORMATION
  Report Type: Report from Study
  Country: ES (occurrence: ES)
  Receive Date: 20230630
  Receipt Date: 20230630
  Transmission Date: 20230722
  Serious: Yes (Hospitalization, Other)
  Sender: FDA-Public Use
  Company Number: None

PATIENT

DRUGS (5)
  1. ACETAMINOPHEN [Suspect]
     Active Substance: ACETAMINOPHEN
     Indication: Pain
     Dosage: 3 G, QD
     Route: 048
     Dates: start: 20221209, end: 20221216
  2. IBUPROFEN [Suspect]
     Active Substance: IBUPROFEN
     Indication: Pain
     Dosage: 1.8 MG, QD
     Route: 048
     Dates: start: 20221218, end: 20221225
  3. FAMCICLOVIR [Suspect]
     Active Substance: FAMCICLOVIR
     Indication: Herpes zoster
     Dosage: 750 MG, QD
     Route: 048
     Dates: start: 20221218, end: 20221225
  4. METAMIZOL [Suspect]
     Active Substance: METAMIZOLE SODIUM
     Indication: Pain
     Dosage: 1725 MG, QD
     Route: 048
     Dates: start: 20221218, end: 20221225
  5. AMOXICILLIN [Suspect]
     Active Substance: AMOXICILLIN
     Indication: Pharyngitis
     Dosage: 3 G, QD
     Route: 048
     Dates: start: 20221209, end: 20221216

REACTIONS (1)
  - Renal tubular necrosis [Recovered/Resolved]

NARRATIVE: CASE EVENT DATE: 20230110
